FAERS Safety Report 25031882 (Version 1)
Quarter: 2025Q1

REPORT INFORMATION
  Report Type: Spontaneous
  Country: US (occurrence: US)
  Receive Date: 20250303
  Receipt Date: 20250303
  Transmission Date: 20250408
  Serious: Yes (Other)
  Sender: MYLAN
  Company Number: US-MYLANLABS-2025M1017415

PATIENT
  Age: 94 Year
  Sex: Female

DRUGS (22)
  1. LORATADINE [Suspect]
     Active Substance: LORATADINE
     Indication: Pruritus
     Dosage: UNK, BID
  2. LORATADINE [Suspect]
     Active Substance: LORATADINE
     Indication: Rash
  3. TRIAMCINOLONE [Suspect]
     Active Substance: TRIAMCINOLONE
     Indication: Pruritus
     Dosage: UNK, BID
  4. TRIAMCINOLONE [Suspect]
     Active Substance: TRIAMCINOLONE
     Indication: Rash
  5. HYDROCORTISONE [Suspect]
     Active Substance: HYDROCORTISONE
     Indication: Pruritus
  6. HYDROCORTISONE [Suspect]
     Active Substance: HYDROCORTISONE
     Indication: Rash
  7. TRIAMCINOLONE [Suspect]
     Active Substance: TRIAMCINOLONE
     Indication: Pruritus
  8. TRIAMCINOLONE [Suspect]
     Active Substance: TRIAMCINOLONE
     Indication: Rash
  9. PREDNISONE [Suspect]
     Active Substance: PREDNISONE
     Indication: Pruritus
  10. PREDNISONE [Suspect]
     Active Substance: PREDNISONE
     Indication: Rash
  11. GABAPENTIN [Suspect]
     Active Substance: GABAPENTIN
     Indication: Anxiety
  12. GABAPENTIN [Suspect]
     Active Substance: GABAPENTIN
     Indication: Insomnia
  13. GABAPENTIN [Suspect]
     Active Substance: GABAPENTIN
     Indication: Emotional distress
  14. CLOBETASOL [Suspect]
     Active Substance: CLOBETASOL
     Indication: Pruritus
  15. CLOBETASOL [Suspect]
     Active Substance: CLOBETASOL
     Indication: Rash
  16. MIRTAZAPINE [Concomitant]
     Active Substance: MIRTAZAPINE
     Indication: Depression
  17. MIRTAZAPINE [Concomitant]
     Active Substance: MIRTAZAPINE
  18. LORAZEPAM [Concomitant]
     Active Substance: LORAZEPAM
     Indication: Anxiety
  19. LORAZEPAM [Concomitant]
     Active Substance: LORAZEPAM
     Indication: Insomnia
  20. LORAZEPAM [Concomitant]
     Active Substance: LORAZEPAM
     Indication: Emotional distress
  21. DIPHENHYDRAMINE [Concomitant]
     Active Substance: DIPHENHYDRAMINE
     Indication: Pruritus
  22. DIPHENHYDRAMINE [Concomitant]
     Active Substance: DIPHENHYDRAMINE
     Indication: Rash

REACTIONS (1)
  - Drug ineffective [Unknown]
